FAERS Safety Report 25139863 (Version 1)
Quarter: 2025Q1

REPORT INFORMATION
  Report Type: Spontaneous
  Country: GB (occurrence: GB)
  Receive Date: 20250331
  Receipt Date: 20250331
  Transmission Date: 20250409
  Serious: Yes (Other)
  Sender: AUROBINDO
  Company Number: GB-MHRA-MED-202503181021304550-WJNFK

PATIENT
  Age: 49 Year
  Sex: Female

DRUGS (1)
  1. ALENDRONIC ACID [Suspect]
     Active Substance: ALENDRONIC ACID
     Indication: Product used for unknown indication
     Dosage: 70 MILLIGRAM, EVERY WEEK (70MG WEEKLY)
     Route: 065
     Dates: start: 20250123, end: 20250227

REACTIONS (3)
  - Lip swelling [Unknown]
  - Oral pain [Unknown]
  - Hyperaesthesia teeth [Unknown]
